FAERS Safety Report 25474299 (Version 1)
Quarter: 2025Q2

REPORT INFORMATION
  Report Type: Spontaneous
  Country: US (occurrence: US)
  Receive Date: 20250624
  Receipt Date: 20250624
  Transmission Date: 20250717
  Serious: Yes (Hospitalization)
  Sender: BRISTOL-MYERS SQUIBB COMPANY
  Company Number: US-BRISTOL-MYERS SQUIBB COMPANY-2025-089118

PATIENT
  Age: 63 Year
  Sex: Female
  Weight: 83.01 kg

DRUGS (1)
  1. POMALYST [Suspect]
     Active Substance: POMALIDOMIDE
     Indication: Plasma cell myeloma
     Dosage: 21 DAYS ON AND 7 DAYS OFF
     Route: 048

REACTIONS (4)
  - Abdominal pain [Unknown]
  - Hyperhidrosis [Unknown]
  - Fatigue [Unknown]
  - Somnolence [Unknown]
